FAERS Safety Report 15234383 (Version 1)
Quarter: 2018Q3

REPORT INFORMATION
  Report Type: Spontaneous
  Country: US (occurrence: US)
  Receive Date: 20180803
  Receipt Date: 20180803
  Transmission Date: 20181010
  Serious: Yes (Other)
  Sender: FDA-Public Use
  Company Number: US-ALKEM LABORATORIES LIMITED-US-ALKEM-2018-04848

PATIENT
  Sex: Male

DRUGS (1)
  1. FINASTERIDE. [Suspect]
     Active Substance: FINASTERIDE
     Indication: ALOPECIA
     Dosage: UNK
     Route: 065

REACTIONS (29)
  - Lethargy [Unknown]
  - Muscle twitching [Unknown]
  - Peyronie^s disease [Unknown]
  - Emotional disorder [Unknown]
  - Libido decreased [Unknown]
  - Scrotal disorder [Unknown]
  - Memory impairment [Unknown]
  - Muscle atrophy [Unknown]
  - Confusional state [Unknown]
  - Sleep disorder [Unknown]
  - Fatigue [Unknown]
  - Blood triglycerides increased [Unknown]
  - Penile size reduced [Unknown]
  - Cognitive disorder [Unknown]
  - Anorgasmia [Unknown]
  - Gynaecomastia [Unknown]
  - Semen volume decreased [Unknown]
  - Asthenia [Unknown]
  - Anxiety [Unknown]
  - Erectile dysfunction [Unknown]
  - Depression [Unknown]
  - High density lipoprotein decreased [Unknown]
  - Anhedonia [Unknown]
  - Organic erectile dysfunction [Unknown]
  - Suicidal ideation [Unknown]
  - Dry skin [Unknown]
  - Metabolic disorder [Unknown]
  - Thinking abnormal [Unknown]
  - Disturbance in attention [Unknown]
